FAERS Safety Report 6694748-6 (Version None)
Quarter: 2010Q2

REPORT INFORMATION
  Report Type: 
  Country: None (occurrence: None)
  Receive Date: 20100423
  Receipt Date: 20100419
  Transmission Date: 20101027
  Serious: Yes (Congenital Anomaly)
  Sender: FDA-Public Use
  Company Number: A0856358A

PATIENT
  Sex: Male
  Weight: 2.8 kg

DRUGS (4)
  1. COMBIVIR [Suspect]
     Indication: ANTIVIRAL TREATMENT
     Dosage: 2U PER DAY
     Dates: start: 20090728
  2. REYATAZ [Suspect]
     Indication: ANTIVIRAL TREATMENT
     Dosage: 300MG PER DAY
     Dates: end: 20090728
  3. TRUVADA [Suspect]
     Indication: ANTIVIRAL TREATMENT
     Dosage: 1U PER DAY
     Dates: end: 20090728
  4. KALETRA [Suspect]
     Indication: ANTIVIRAL TREATMENT
     Dosage: 4U PER DAY
     Dates: start: 20090728

REACTIONS (5)
  - ADRENOGENITAL SYNDROME [None]
  - DRUG EXPOSURE DURING PREGNANCY [None]
  - HYPOCALCAEMIA [None]
  - HYPONATRAEMIA [None]
  - ULTRASOUND KIDNEY ABNORMAL [None]
